FAERS Safety Report 4394080-X (Version None)
Quarter: 2004Q3

REPORT INFORMATION
  Report Type: 
  Country: None (occurrence: None)
  Receive Date: 20040708
  Receipt Date: 20040708
  Transmission Date: 20050211
  Serious: Yes (Hospitalization)
  Sender: FDA-Public Use
  Company Number: None

PATIENT
  Sex: Male
  Weight: 113.8529 kg

DRUGS (9)
  1. PROCRIT (EPOETIN) 40,000 UNIT/CC [Suspect]
     Indication: ANAEMIA
     Dosage: 40,000 UNITTS SQ EVERY WEEK
     Dates: start: 20040621
  2. PROCRIT (EPOETIN) 40,000 UNIT/CC [Suspect]
     Indication: ANAEMIA
     Dosage: 40,000 UNITTS SQ EVERY WEEK
     Dates: start: 20040628
  3. LESCOL [Concomitant]
  4. COZAAR [Concomitant]
  5. ACTOS [Concomitant]
  6. RADIATION THERAPY [Concomitant]
  7. ASPIRIN [Concomitant]
  8. PRIMIDONE [Concomitant]
  9. METFORMIN HCL [Concomitant]

REACTIONS (1)
  - PATHOLOGICAL FRACTURE [None]
